FAERS Safety Report 4715674-5 (Version None)
Quarter: 2005Q3

REPORT INFORMATION
  Report Type: 
  Country: None (occurrence: None)
  Receive Date: 20050715
  Receipt Date: 20050715
  Transmission Date: 20060218
  Serious: Yes (Other)
  Sender: FDA-Public Use
  Company Number: None

PATIENT
  Age: 67 Year
  Sex: Female
  Weight: 80.7403 kg

DRUGS (5)
  1. GABAPENTIN [Suspect]
     Indication: BURNING SENSATION
     Dosage: ONCE A DAY ORAL
     Route: 048
     Dates: start: 20050610, end: 20050710
  2. GABAPENTIN [Suspect]
     Indication: NEUROPATHY
     Dosage: ONCE A DAY ORAL
     Route: 048
     Dates: start: 20050610, end: 20050710
  3. GABAPENTIN [Suspect]
     Dosage: ONCE A DAY ORAL
     Route: 048
  4. LOSEC [Concomitant]
  5. PREMARIN [Concomitant]

REACTIONS (3)
  - DYSKINESIA [None]
  - MUSCLE SPASMS [None]
  - TREMOR [None]
